FAERS Safety Report 8426972-6 (Version None)
Quarter: 2012Q2

REPORT INFORMATION
  Report Type: 
  Country: None (occurrence: None)
  Receive Date: 20120601
  Receipt Date: 20120524
  Transmission Date: 20120825
  Serious: No
  Sender: FDA-Public Use
  Company Number: DSA_57526_2012

PATIENT
  Sex: Male

DRUGS (1)
  1. XENZINE 25 MG (NOT SPECIFIED) [Suspect]
     Indication: TOURETTE'S DISORDER
     Dosage: (100 MG, DAILY, DIVIDED AND TAKEN THREE TIMES DAILY ORAL)
     Route: 048
     Dates: start: 20090112, end: 20120524

REACTIONS (1)
  - ATRIAL FIBRILLATION [None]
